FAERS Safety Report 7895367-6 (Version None)
Quarter: 2011Q4

REPORT INFORMATION
  Report Type: 
  Country: None (occurrence: None)
  Receive Date: 20111106
  Receipt Date: 20110825
  Transmission Date: 20120403
  Serious: No
  Sender: FDA-Public Use
  Company Number: US-AMGEN-USASP2011041585

PATIENT
  Age: 16 Year
  Sex: Female
  Weight: 70.1 kg

DRUGS (4)
  1. METHOTREXATE [Concomitant]
     Indication: ARTHRITIS
     Dosage: 15 MG, QWK
     Route: 058
     Dates: start: 20110217
  2. MOBIC [Concomitant]
     Indication: ARTHRITIS
     Dosage: 15 MG, QD
     Route: 048
     Dates: start: 20110217
  3. ENBREL [Suspect]
     Indication: ANKYLOSING SPONDYLITIS
     Dosage: 25 MG, 2 TIMES/WK
     Route: 058
     Dates: start: 20110704
  4. ZANTAC [Concomitant]
     Indication: GASTRITIS
     Dosage: 75 MG, AS REQUIRED
     Route: 048
     Dates: start: 20090217

REACTIONS (6)
  - INJECTION SITE EXTRAVASATION [None]
  - INJECTION SITE URTICARIA [None]
  - INJECTION SITE PRURITUS [None]
  - INJECTION SITE SWELLING [None]
  - INJECTION SITE ERYTHEMA [None]
  - INJECTION SITE REACTION [None]
